FAERS Safety Report 6866071-8 (Version None)
Quarter: 2010Q3

REPORT INFORMATION
  Report Type: 
  Country: None (occurrence: None)
  Receive Date: 20100722
  Receipt Date: 20100708
  Transmission Date: 20110219
  Serious: Yes (Other)
  Sender: FDA-Public Use
  Company Number: PHHY2010CA23998

PATIENT
  Sex: Male

DRUGS (10)
  1. CLOZARIL [Suspect]
     Indication: SCHIZOPHRENIA
     Dosage: UNK
     Dates: start: 19980623, end: 19980930
  2. CLOZARIL [Suspect]
     Dosage: 100 MG
     Dates: start: 20100517, end: 20100718
  3. ATIVAN [Concomitant]
     Dosage: 01 MG, BID
  4. ATIVAN [Concomitant]
     Dosage: UNK
     Dates: start: 20090610
  5. ATIVAN [Concomitant]
     Dosage: 01 MG, QHS
     Dates: start: 20090610
  6. RISPERDAL CONSTA [Concomitant]
     Dosage: 50 MG, BIW
     Route: 030
  7. EPIVAL [Concomitant]
     Dosage: UNK
  8. EPIVAL [Concomitant]
     Dosage: 100 MG, QHS
     Dates: start: 20090610
  9. EFFEXOR [Concomitant]
     Dosage: UNK
     Dates: start: 20090610
  10. EFFEXOR [Concomitant]
     Dosage: UNK
     Dates: start: 20090610

REACTIONS (6)
  - FEELING ABNORMAL [None]
  - HAEMOGLOBIN DECREASED [None]
  - HALLUCINATION, AUDITORY [None]
  - MONOCYTE COUNT INCREASED [None]
  - RED BLOOD CELL COUNT DECREASED [None]
  - SOMNOLENCE [None]
